FAERS Safety Report 7013972-6 (Version None)
Quarter: 2010Q3

REPORT INFORMATION
  Report Type: 
  Country: None (occurrence: None)
  Receive Date: 20100925
  Receipt Date: 20100916
  Transmission Date: 20110219
  Serious: Yes (Death, Other)
  Sender: FDA-Public Use
  Company Number: US-AMGEN-QUU439119

PATIENT
  Sex: Female
  Weight: 63 kg

DRUGS (1)
  1. NPLATE [Suspect]
     Indication: SQUAMOUS CELL CARCINOMA
     Dates: start: 20100315, end: 20100315

REACTIONS (3)
  - CERVIX CARCINOMA [None]
  - THROMBOCYTOPENIA [None]
  - VAGINAL CANCER [None]
